FAERS Safety Report 10047408 (Version 1)
Quarter: 2014Q1

REPORT INFORMATION
  Report Type: Spontaneous
  Country: US (occurrence: US)
  Receive Date: 20140331
  Receipt Date: 20140331
  Transmission Date: 20141002
  Serious: Yes (Other)
  Sender: FDA-Public Use
  Company Number: US-SA-2014SA035406

PATIENT
  Age: 62 Year
  Sex: Female

DRUGS (2)
  1. LANTUS SOLOSTAR [Suspect]
     Indication: TYPE 2 DIABETES MELLITUS
     Dosage: DOSE: 47 UNITS AND NOW WENT UPTO 50 UNITS AT TIME
     Route: 065
     Dates: start: 2012
  2. SOLOSTAR [Concomitant]

REACTIONS (1)
  - Foot operation [Unknown]
